FAERS Safety Report 7688753-0 (Version None)
Quarter: 2011Q3

REPORT INFORMATION
  Report Type: 
  Country: None (occurrence: None)
  Receive Date: 20110817
  Receipt Date: 20110815
  Transmission Date: 20111222
  Serious: Yes (Death, Other)
  Sender: FDA-Public Use
  Company Number: US-TEVA-296573USA

PATIENT
  Age: 58 Year
  Sex: Male

DRUGS (3)
  1. TEMOZOLOMIDE [Suspect]
     Indication: GLIOBLASTOMA
     Dosage: DAYS 1-7 AND 15-21
  2. CLARAVIS [Suspect]
     Indication: GLIOBLASTOMA
     Dosage: DAYS 1-21
  3. CORTICOSTEROID NOS [Concomitant]
     Indication: GLIOBLASTOMA

REACTIONS (1)
  - PROGRESSIVE MULTIFOCAL LEUKOENCEPHALOPATHY [None]
